FAERS Safety Report 12131780 (Version 1)
Quarter: 2016Q1

REPORT INFORMATION
  Report Type: Spontaneous
  Country: US (occurrence: US)
  Receive Date: 20160301
  Receipt Date: 20160301
  Transmission Date: 20160526
  Serious: No
  Sender: FDA-Public Use
  Company Number: US-ACTAVIS-2015-09661

PATIENT
  Sex: Female

DRUGS (1)
  1. DOXYCYCLINE HYCLATE (ACTAVIS LABORATORIES FL) [Suspect]
     Active Substance: DOXYCYCLINE HYCLATE
     Indication: PRODUCT USED FOR UNKNOWN INDICATION
     Dosage: UNK, UNKNOWN
     Route: 065

REACTIONS (9)
  - Choking [Unknown]
  - Nasal discomfort [Unknown]
  - Nasal oedema [Unknown]
  - Cough [Unknown]
  - Regurgitation [Unknown]
  - Throat irritation [Unknown]
  - Nausea [Unknown]
  - Eructation [Unknown]
  - Dyspnoea [Recovered/Resolved]

NARRATIVE: CASE EVENT DATE: 20140831
